FAERS Safety Report 25888474 (Version 1)
Quarter: 2025Q4

REPORT INFORMATION
  Report Type: Other
  Country: CN (occurrence: CN)
  Receive Date: 20251007
  Receipt Date: 20251007
  Transmission Date: 20260118
  Serious: Yes (Other)
  Sender: Phathom Pharmaceuticals
  Company Number: CN-PHATHOM PHARMACEUTICALS INC.-2025PHT02790

PATIENT
  Age: 51 Year
  Sex: Female
  Weight: 55 kg

DRUGS (4)
  1. VONOPRAZAN [Suspect]
     Active Substance: VONOPRAZAN
     Indication: Helicobacter infection
     Dosage: 20 MG, 2X/DAY
     Route: 048
     Dates: start: 20250827, end: 20250902
  2. AMOXICILLIN [Suspect]
     Active Substance: AMOXICILLIN
     Indication: Helicobacter infection
     Dosage: 1 G, 2X/DAY
     Route: 048
     Dates: start: 20250827, end: 20250902
  3. BISMUTH [Suspect]
     Active Substance: BISMUTH SUBSALICYLATE
     Indication: Helicobacter infection
     Dosage: UNK, 2X/DAY
     Route: 048
     Dates: start: 20250827, end: 20250902
  4. DOXYCYCLINE HYDROCHLORIDE [Suspect]
     Active Substance: DOXYCYCLINE HYDROCHLORIDE
     Indication: Helicobacter infection
     Dosage: 0.1 G, 2X/DAY
     Route: 048
     Dates: start: 20250827, end: 20250902

REACTIONS (5)
  - Pyrexia [Recovering/Resolving]
  - Temperature intolerance [Recovering/Resolving]
  - Chills [Recovering/Resolving]
  - Abdominal distension [Recovering/Resolving]
  - Pharyngeal disorder [Recovering/Resolving]

NARRATIVE: CASE EVENT DATE: 20250831
